FAERS Safety Report 19912823 (Version 1)
Quarter: 2021Q4

REPORT INFORMATION
  Report Type: Spontaneous
  Country: US (occurrence: US)
  Receive Date: 20211004
  Receipt Date: 20211004
  Transmission Date: 20220303
  Serious: No
  Sender: FDA-Public Use
  Company Number: None

PATIENT
  Age: 20 Month
  Sex: Male
  Weight: 12.6 kg

DRUGS (1)
  1. PARENTS CHOICE INFANTS PAIN AND FEVER [Suspect]
     Active Substance: ACETAMINOPHEN
     Indication: Pyrexia
     Route: 048
     Dates: start: 20211001, end: 20211003

REACTIONS (2)
  - Rash [None]
  - Product quality issue [None]

NARRATIVE: CASE EVENT DATE: 20211001
